FAERS Safety Report 8226958-0 (Version None)
Quarter: 2012Q1

REPORT INFORMATION
  Report Type: 
  Country: None (occurrence: None)
  Receive Date: 20120322
  Receipt Date: 20120309
  Transmission Date: 20120608
  Serious: Yes (Other)
  Sender: FDA-Public Use
  Company Number: AR-AMGEN-ARGSP2011038568

PATIENT
  Age: 60 Year
  Sex: Male
  Weight: 90 kg

DRUGS (5)
  1. ASPIRIN [Concomitant]
     Dosage: UNK
     Route: 048
  2. ENBREL [Suspect]
     Indication: PSORIASIS
     Dosage: 50 MG, 2X/WEEK
     Route: 058
     Dates: start: 20101201, end: 20110501
  3. VITAMINS                           /90003601/ [Concomitant]
     Dosage: UNK
  4. CARVEDILOL [Concomitant]
     Dosage: UNK
  5. VITAMINS                           /00067501/ [Concomitant]
     Dosage: UNK

REACTIONS (1)
  - GASTRITIS EROSIVE [None]
